FAERS Safety Report 7423610-6 (Version None)
Quarter: 2011Q2

REPORT INFORMATION
  Report Type: 
  Country: None (occurrence: None)
  Receive Date: 20110419
  Receipt Date: 20110415
  Transmission Date: 20111010
  Serious: Yes (Death, Other)
  Sender: FDA-Public Use
  Company Number: PHHY2011JP17454

PATIENT
  Sex: Male

DRUGS (6)
  1. TASIGNA [Suspect]
     Dosage: 400 MG, DAILY
     Route: 048
     Dates: start: 20110205, end: 20110210
  2. DIGOSIN [Concomitant]
     Indication: CARDIAC FAILURE CONGESTIVE
  3. TASIGNA [Suspect]
     Indication: CHRONIC MYELOID LEUKAEMIA TRANSFORMATION
     Dosage: 800 MG, DAILY
     Route: 048
     Dates: start: 20110128, end: 20110204
  4. DEXAMETHASONE SODIUM PHOSPHATE [Concomitant]
     Indication: CHRONIC MYELOID LEUKAEMIA
     Dosage: 3.3 UG, UNK
     Route: 042
     Dates: start: 20110210
  5. DIGOSIN [Concomitant]
     Indication: ATRIAL FIBRILLATION
     Dosage: 0.125 MG, UNK
     Route: 048
     Dates: start: 20101011
  6. TASIGNA [Suspect]
     Dosage: 200 MG, DAILY
     Route: 048
     Dates: start: 20110214, end: 20110220

REACTIONS (13)
  - OLIGURIA [None]
  - MALAISE [None]
  - PNEUMONIA [None]
  - CONCOMITANT DISEASE PROGRESSION [None]
  - DYSPHAGIA [None]
  - DYSPNOEA [None]
  - NEOPLASM MALIGNANT [None]
  - PYREXIA [None]
  - CHRONIC MYELOID LEUKAEMIA [None]
  - BLOOD PRESSURE DECREASED [None]
  - LYMPHOMA [None]
  - RESPIRATORY FAILURE [None]
  - DEPRESSED LEVEL OF CONSCIOUSNESS [None]
